FAERS Safety Report 7301066-1 (Version None)
Quarter: 2011Q1

REPORT INFORMATION
  Report Type: 
  Country: None (occurrence: None)
  Receive Date: 20110218
  Receipt Date: 20110209
  Transmission Date: 20110831
  Serious: Yes (Other)
  Sender: FDA-Public Use
  Company Number: FR-BRISTOL-MYERS SQUIBB COMPANY-15540990

PATIENT
  Sex: Male

DRUGS (1)
  1. BARACLUDE [Suspect]
     Indication: HEPATITIS B
     Dosage: DURATION OF THERAPY:6MONTHS AGO
     Dates: start: 20100101

REACTIONS (1)
  - BLOOD CREATINE PHOSPHOKINASE INCREASED [None]
